FAERS Safety Report 19267267 (Version 1)
Quarter: 2021Q2

REPORT INFORMATION
  Report Type: Spontaneous
  Country: US (occurrence: US)
  Receive Date: 20210518
  Receipt Date: 20210518
  Transmission Date: 20210717
  Serious: Yes (Other)
  Sender: FDA-Public Use
  Company Number: US-ONCOPEPPR-00026

PATIENT
  Sex: Female

DRUGS (1)
  1. MELPHALAN FLUFENAMIDE [Suspect]
     Active Substance: MELPHALAN FLUFENAMIDE
     Indication: PRODUCT USED FOR UNKNOWN INDICATION
     Dosage: TIME INTERVAL: TOTAL
     Route: 065
     Dates: start: 20210322, end: 20210322

REACTIONS (2)
  - Cytopenia [Unknown]
  - Bone marrow failure [Unknown]
